FAERS Safety Report 4891924-X (Version None)
Quarter: 2006Q1

REPORT INFORMATION
  Report Type: 
  Country: None (occurrence: None)
  Receive Date: 20060123
  Receipt Date: 20060104
  Transmission Date: 20060701
  Serious: Yes (Other)
  Sender: FDA-Public Use
  Company Number: GB200601000550

PATIENT
  Age: 47 Year
  Sex: Male

DRUGS (2)
  1. CYMBALTA [Suspect]
     Indication: DEPRESSION
     Dosage: 60 MG, ORAL
     Route: 048
     Dates: start: 20050623
  2. EPILUM CHRONO (VALPROATE SODIUM) TABLET [Concomitant]

REACTIONS (1)
  - HYPERTENSION [None]
